FAERS Safety Report 14893897 (Version 20)
Quarter: 2019Q3

REPORT INFORMATION
  Report Type: Report from Study
  Country: US (occurrence: US)
  Receive Date: 20180514
  Receipt Date: 20190722
  Transmission Date: 20191004
  Serious: Yes (Death, Hospitalization)
  Sender: FDA-Public Use
  Company Number: US-ACTELION-A-NJ2016-142262

PATIENT
  Age: 72 Year
  Sex: Female
  Weight: 66.21 kg

DRUGS (58)
  1. REMODULIN [Suspect]
     Active Substance: TREPROSTINIL
     Indication: PULMONARY ARTERIAL HYPERTENSION
     Dosage: 59 NG/KG, PER MIN
     Route: 042
  2. REMODULIN [Suspect]
     Active Substance: TREPROSTINIL
     Dosage: 62 NG/KG, PER MIN
     Route: 042
     Dates: start: 20150624
  3. OMEPRAZOLE. [Concomitant]
     Active Substance: OMEPRAZOLE
     Dosage: 40 MG, QD
     Route: 048
     Dates: start: 20140402
  4. MIDODRINE HCL [Concomitant]
     Active Substance: MIDODRINE HYDROCHLORIDE
     Dosage: 20 UNK
     Route: 048
  5. ZOFRAN [Concomitant]
     Active Substance: ONDANSETRON HYDROCHLORIDE
     Dosage: 4 MG, Q8HRS PRN
     Dates: start: 20161204
  6. ZOFRAN [Concomitant]
     Active Substance: ONDANSETRON HYDROCHLORIDE
     Dosage: 4 MG, Q4HRS PRN
  7. MAALOX ANTACID [Concomitant]
     Active Substance: ALUMINUM HYDROXIDE\DIMETHICONE\MAGNESIUM HYDROXIDE
     Dosage: 30 ML, Q4HRS PRN
  8. SODIUM CHLORIDE. [Concomitant]
     Active Substance: SODIUM CHLORIDE
     Dosage: 100 ML, PRN
     Route: 042
  9. MAXIPIME [Concomitant]
     Active Substance: CEFEPIME HYDROCHLORIDE
  10. OPSUMIT [Suspect]
     Active Substance: MACITENTAN
     Dosage: 10 MG, QD
     Route: 048
     Dates: end: 20190425
  11. DYMISTA [Concomitant]
     Active Substance: AZELASTINE HYDROCHLORIDE\FLUTICASONE PROPIONATE
     Dosage: 2 SPRAYS EACH NOSTRIL QD PRN
     Route: 045
     Dates: start: 20171010
  12. TRAMADOL HCL [Concomitant]
     Active Substance: TRAMADOL HYDROCHLORIDE
     Dosage: 50 MG, PRN
     Route: 048
     Dates: start: 20140829
  13. OCUVITE [Concomitant]
     Active Substance: VITAMINS
     Dosage: UNK, BID
     Dates: start: 20150325
  14. OPSUMIT [Suspect]
     Active Substance: MACITENTAN
     Indication: PULMONARY ARTERIAL HYPERTENSION
     Dosage: 10 MG, QD
     Route: 048
     Dates: start: 20140824
  15. REVATIO [Suspect]
     Active Substance: SILDENAFIL CITRATE
     Dosage: UNK
     Route: 065
     Dates: end: 20190425
  16. WARFARIN [Concomitant]
     Active Substance: WARFARIN
     Dosage: 5 MG, QD
     Route: 048
     Dates: start: 20180326
  17. DIGOXIN. [Concomitant]
     Active Substance: DIGOXIN
     Dosage: .062 MG T,TH
     Route: 048
  18. ALPRAZOLAM. [Concomitant]
     Active Substance: ALPRAZOLAM
     Dosage: 0.25 MG, 3 X DAILY, PRN
     Route: 048
     Dates: start: 20140402
  19. VITAMIN D [Concomitant]
     Active Substance: VITAMIN D NOS
     Dosage: 50000 U, UNK
     Dates: start: 20150325
  20. FERROUS SULFATE. [Concomitant]
     Active Substance: FERROUS SULFATE
     Dosage: 325 (65)
     Route: 048
  21. TYLENOL [Concomitant]
     Active Substance: ACETAMINOPHEN
     Dosage: 650 MG, Q6H PRN
     Route: 048
  22. OCEAN NASAL [Concomitant]
     Dosage: 1 SPRAYRIGHT NOSTRIL Q2H PRN
  23. EPOETIN ALFA [Concomitant]
     Active Substance: ERYTHROPOIETIN
     Dosage: 1 ML
     Route: 058
  24. WARFARIN [Concomitant]
     Active Substance: WARFARIN
     Dosage: 2.5 MG, UNK
     Route: 048
  25. WARFARIN [Concomitant]
     Active Substance: WARFARIN
     Dosage: 5MG M,W,TH,SA,SU 7.5MG T,F
  26. LASIX [Concomitant]
     Active Substance: FUROSEMIDE
     Dosage: 80 MG, BID
     Route: 048
  27. DIGOXIN. [Concomitant]
     Active Substance: DIGOXIN
     Dosage: 125 MCG, T,TH
  28. DIGOXIN. [Concomitant]
     Active Substance: DIGOXIN
     Dosage: 125 MCG, QD
  29. TRAZODONE [Concomitant]
     Active Substance: TRAZODONE HYDROCHLORIDE
     Dosage: 50 MG, QPM
     Route: 048
     Dates: start: 20140402
  30. MIDODRINE HCL [Concomitant]
     Active Substance: MIDODRINE HYDROCHLORIDE
     Dosage: 5 MG, TID
     Route: 048
     Dates: start: 20181123
  31. MORPHINE [Concomitant]
     Active Substance: MORPHINE
     Dosage: 1 MG=0.5 ML, Q4H PRN
     Route: 048
  32. REMODULIN [Suspect]
     Active Substance: TREPROSTINIL
     Dosage: 60.8 NG/KG, PER MIN
     Route: 042
  33. METOLAZONE. [Concomitant]
     Active Substance: METOLAZONE
     Dosage: 5 MG, 1 TAB, M, W, F
     Route: 048
     Dates: start: 20180430
  34. CYMBALTA [Concomitant]
     Active Substance: DULOXETINE HYDROCHLORIDE
     Dosage: 60 MG, QD
     Route: 048
  35. SYNTHROID [Concomitant]
     Active Substance: LEVOTHYROXINE SODIUM
     Dosage: 88 MCG, UNK
     Route: 048
     Dates: start: 20170118
  36. REMODULIN [Suspect]
     Active Substance: TREPROSTINIL
     Dosage: 62 NG/KG, PER MIN
     Route: 042
     Dates: start: 2010
  37. REMODULIN [Suspect]
     Active Substance: TREPROSTINIL
     Dosage: UNK
     Route: 042
  38. LASIX [Concomitant]
     Active Substance: FUROSEMIDE
     Dosage: 80 MG T,TH,SA,SU
     Route: 048
  39. DILT-XR [Concomitant]
     Active Substance: DILTIAZEM
     Dosage: 240 MG, UNK
     Route: 048
     Dates: start: 20161123
  40. CALCIUM + VITAMIN D [Concomitant]
     Active Substance: CALCIUM\VITAMIN D
     Dosage: UNK
     Dates: start: 20150325
  41. TYLENOL [Concomitant]
     Active Substance: ACETAMINOPHEN
     Dosage: 650 MG, Q4H PRN
     Route: 048
  42. COLACE [Concomitant]
     Active Substance: DOCUSATE SODIUM
     Dosage: 100 MG, BID
     Route: 048
  43. MIRALAX [Concomitant]
     Active Substance: POLYETHYLENE GLYCOL 3350
     Dosage: 17 G, QD
     Route: 048
  44. REVATIO [Suspect]
     Active Substance: SILDENAFIL CITRATE
     Indication: PULMONARY ARTERIAL HYPERTENSION
     Dosage: 20 MG, TID
     Route: 048
     Dates: start: 20140402
  45. REMODULIN [Suspect]
     Active Substance: TREPROSTINIL
     Dosage: 60 NG/KG, PER MIN
     Route: 042
  46. REMODULIN [Suspect]
     Active Substance: TREPROSTINIL
     Dosage: 54 NG/KG, PER MIN
     Route: 042
  47. DILTIAZEM. [Concomitant]
     Active Substance: DILTIAZEM
  48. OMEPRAZOLE. [Concomitant]
     Active Substance: OMEPRAZOLE
     Dosage: 40 MG, BID
     Route: 048
  49. OXYBUTYNIN. [Concomitant]
     Active Substance: OXYBUTYNIN CHLORIDE
     Dosage: 15 MG, QD
     Route: 048
     Dates: start: 20170612
  50. ZOFRAN [Concomitant]
     Active Substance: ONDANSETRON HYDROCHLORIDE
     Dosage: 4 MG, Q8HRS PRN
     Route: 048
  51. OCEAN NASAL [Concomitant]
     Dosage: 1 SPRAYRIGHT NOSTRIL QID PRN
  52. SILDENAFIL. [Concomitant]
     Active Substance: SILDENAFIL
     Dosage: 20 MG, TID
     Route: 048
     Dates: start: 2014
  53. BUMETANIDE. [Concomitant]
     Active Substance: BUMETANIDE
     Dosage: 2 MG, UNK
     Dates: start: 20180227
  54. DIGOXIN. [Concomitant]
     Active Substance: DIGOXIN
     Dosage: 125 MCG, EVERY OTHER DAY
     Dates: start: 20140402
  55. CYMBALTA [Concomitant]
     Active Substance: DULOXETINE HYDROCHLORIDE
     Dosage: 30 MG, BID
     Route: 048
     Dates: start: 20140402
  56. ATORVASTATIN CALCIUM. [Concomitant]
     Active Substance: ATORVASTATIN CALCIUM
     Dosage: 10 MG, QD
     Route: 048
     Dates: start: 20150227
  57. CALCITRIOL. [Concomitant]
     Active Substance: CALCITRIOL
     Dosage: 0.25 MCG, UNK
     Route: 048
     Dates: start: 20180212
  58. DILAUDID [Concomitant]
     Active Substance: HYDROMORPHONE HYDROCHLORIDE
     Dosage: .5 MG, Q6HRS PRN

REACTIONS (48)
  - Endocarditis [Fatal]
  - Oedema [Unknown]
  - Pneumonia [Unknown]
  - Blood pressure abnormal [Unknown]
  - Dialysis [Unknown]
  - Polyuria [Recovered/Resolved]
  - Weight increased [Recovered/Resolved]
  - Device dislocation [Recovered/Resolved]
  - End stage renal disease [Fatal]
  - Pulmonary oedema [Recovered/Resolved]
  - Chronic kidney disease [Unknown]
  - Mitral valve stenosis [Unknown]
  - Disease progression [Fatal]
  - Hospitalisation [Unknown]
  - Atrial fibrillation [Unknown]
  - Vascular device infection [Recovered/Resolved]
  - Cerebral artery embolism [Unknown]
  - Hypotension [Unknown]
  - Catheter site pain [Recovering/Resolving]
  - Hypoxia [Not Recovered/Not Resolved]
  - Lower respiratory tract infection [Unknown]
  - Left atrial enlargement [Unknown]
  - Ventricular dysfunction [Unknown]
  - Embolic stroke [Unknown]
  - Pulmonary arterial hypertension [Fatal]
  - Bacterial disease carrier [Fatal]
  - Right ventricular ejection fraction decreased [Recovered/Resolved]
  - Condition aggravated [Recovered/Resolved]
  - Streptococcus test positive [Recovered/Resolved]
  - Mitral valve incompetence [Unknown]
  - Asthenia [Unknown]
  - Thrombocytopenia [Unknown]
  - Dyspnoea [Unknown]
  - Pleural effusion [Recovered/Resolved]
  - Peripheral swelling [Unknown]
  - Oxygen saturation decreased [Unknown]
  - Bronchostenosis [Unknown]
  - Cerebral infarction [Unknown]
  - Hypomagnesaemia [Unknown]
  - Catheter site erythema [Recovering/Resolving]
  - Pulmonary arterial pressure decreased [Recovered/Resolved]
  - Swelling [Unknown]
  - Respiratory failure [Unknown]
  - Right ventricular enlargement [Unknown]
  - Venous hypertension [Unknown]
  - Syncope [Unknown]
  - Leukocytosis [Unknown]
  - Headache [Unknown]

NARRATIVE: CASE EVENT DATE: 20171106
